FAERS Safety Report 18320303 (Version 20)
Quarter: 2021Q3

REPORT INFORMATION
  Report Type: Spontaneous
  Country: NL (occurrence: NL)
  Receive Date: 20200929
  Receipt Date: 20210717
  Transmission Date: 20211014
  Serious: Yes (Hospitalization, Other)
  Sender: FDA-Public Use
  Company Number: NL-AUROBINDO-AUR-APL-2020-049331

PATIENT
  Age: 66 Year
  Sex: Male
  Weight: 75.7 kg

DRUGS (94)
  1. DEXAMETHASON [Suspect]
     Active Substance: DEXAMETHASONE
     Indication: PRODUCT USED FOR UNKNOWN INDICATION
     Dosage: 40 MILLIGRAM, ONCE A DAY
     Route: 048
     Dates: start: 20200902, end: 20200904
  2. DEXAMETHASON [Suspect]
     Active Substance: DEXAMETHASONE
     Dosage: 10 MILLIGRAM, ONCE A DAY
     Route: 042
     Dates: start: 20200922, end: 20200923
  3. FLUDARABINE [Suspect]
     Active Substance: FLUDARABINE PHOSPHATE
     Dosage: 10 MILLIGRAM, TWO TIMES A DAY
     Route: 042
     Dates: start: 20201009, end: 20201012
  4. CARBOPLATIN. [Concomitant]
     Active Substance: CARBOPLATIN
     Indication: PRODUCT USED FOR UNKNOWN INDICATION
     Dosage: UNK
     Route: 065
  5. FUROSEMIDE. [Concomitant]
     Active Substance: FUROSEMIDE
     Dosage: 20 MILLIGRAM TOTAL
     Route: 042
     Dates: start: 20200912, end: 20200912
  6. FUROSEMIDE. [Concomitant]
     Active Substance: FUROSEMIDE
     Dosage: 20 MILLIGRAM, TWO TIMES A DAY
     Route: 065
     Dates: start: 20200920
  7. IBRUTINIB [Concomitant]
     Active Substance: IBRUTINIB
     Indication: PRODUCT USED FOR UNKNOWN INDICATION
     Dosage: 560 MILLIGRAM, ONCE A DAY
     Route: 048
     Dates: start: 20200813, end: 20200818
  8. LACTULOSE. [Concomitant]
     Active Substance: LACTULOSE
     Indication: CONSTIPATION
     Dosage: 10 GRAM, TWO TIMES A DAY
     Route: 048
     Dates: start: 20200826, end: 20200909
  9. METOCLOPRAMIDE. [Concomitant]
     Active Substance: METOCLOPRAMIDE
     Dosage: 10 MILLIGRAM, TWO TIMES A DAY. PRN
     Route: 042
     Dates: start: 20200916, end: 20200924
  10. METOCLOPRAMIDE. [Concomitant]
     Active Substance: METOCLOPRAMIDE
     Dosage: 10 MILLIGRAM, 3 TIMES A DAY
     Route: 065
     Dates: start: 20201209
  11. MOVICOLON [Concomitant]
     Active Substance: POLYETHYLENE GLYCOL 3350\POTASSIUM CHLORIDE\SODIUM BICARBONATE\SODIUM CHLORIDE
     Dosage: 13.8 MILLIGRAM, TWO TIMES A DAY
     Route: 048
     Dates: start: 20201009
  12. PARACETAMOL [Concomitant]
     Active Substance: ACETAMINOPHEN
     Dosage: 1000 MILLIGRAM, 3 TIMES A DAY
     Route: 042
     Dates: start: 20201009, end: 20201009
  13. PLANTAGO PSYLLIUM [Concomitant]
     Active Substance: HERBALS\PLANTAGO INDICA WHOLE
     Indication: CONSTIPATION
     Dosage: 3.4 GRAM, 3 TIMES A DAY
     Route: 048
     Dates: start: 20200804
  14. PLANTAGO PSYLLIUM [Concomitant]
     Active Substance: HERBALS\PLANTAGO INDICA WHOLE
     Dosage: 3.4 GRAM, AS NECESSARY
     Route: 048
     Dates: start: 20210409
  15. DEXAMETHASON [Suspect]
     Active Substance: DEXAMETHASONE
     Dosage: 10 MILLIGRAM, TWO TIMES A DAY
     Route: 048
     Dates: start: 20201009, end: 20201012
  16. DEXAMETHASON [Suspect]
     Active Substance: DEXAMETHASONE
     Dosage: 10 MILLIGRAM, ONCE A DAY
     Route: 048
     Dates: start: 20201013, end: 20201016
  17. FLUDARABINE [Suspect]
     Active Substance: FLUDARABINE PHOSPHATE
     Dosage: 30 MILLIGRAM (1 TOTAL)
     Route: 042
     Dates: start: 20200912, end: 20200912
  18. FLUDARABINE [Suspect]
     Active Substance: FLUDARABINE PHOSPHATE
     Dosage: 10 MILLIGRAM, ONCE A DAY
     Route: 042
     Dates: start: 20200922, end: 20200923
  19. ESOMEPRAZOLE. [Concomitant]
     Active Substance: ESOMEPRAZOLE MAGNESIUM
     Indication: PRODUCT USED FOR UNKNOWN INDICATION
     Dosage: 40 MILLIGRAM, TWO TIMES A DAY
     Route: 048
     Dates: start: 20200819, end: 20200819
  20. ESOMEPRAZOLE. [Concomitant]
     Active Substance: ESOMEPRAZOLE MAGNESIUM
     Dosage: 40 MILLIGRAM, ONCE A DAY
     Route: 048
     Dates: start: 20210330, end: 20210331
  21. FENTANYL. [Concomitant]
     Active Substance: FENTANYL
     Dosage: 100 MICROGRAM, TOTAL
     Route: 060
     Dates: start: 20201009, end: 20201009
  22. IBRUTINIB [Concomitant]
     Active Substance: IBRUTINIB
     Dosage: 140 MILLIGRAM, ONCE A DAY
     Route: 048
     Dates: start: 20200825, end: 20200915
  23. METOCLOPRAMIDE. [Concomitant]
     Active Substance: METOCLOPRAMIDE
     Dosage: 10 MILLIGRAM, 1 TOTAL
     Route: 042
     Dates: start: 20210331, end: 20210331
  24. ONDANSETRON [Concomitant]
     Active Substance: ONDANSETRON
     Dosage: 8 MILLIGRAM, TWO TIMES A DAY
     Route: 065
     Dates: start: 20200911, end: 20200915
  25. VORICONAZOLE. [Concomitant]
     Active Substance: VORICONAZOLE
     Dosage: 400 MILLIGRAM, ONCE A DAY
     Route: 048
     Dates: start: 20201120, end: 20201120
  26. MESNA. [Suspect]
     Active Substance: MESNA
     Dosage: 400 MILLIGRAM, 3 TIMES A DAY
     Route: 042
     Dates: start: 20200911, end: 20200912
  27. ANIDULAFUNGIN [Concomitant]
     Active Substance: ANIDULAFUNGIN
     Dosage: 20 MILLIGRAM, DAILY
     Route: 065
     Dates: start: 20200902, end: 20200902
  28. CARBOPLATIN;CYTARABINE;DEXAMETHASONE;RITUXIMAB [Concomitant]
     Indication: PRODUCT USED FOR UNKNOWN INDICATION
     Dosage: UNK
     Route: 065
     Dates: start: 20200714
  29. FENTANYL. [Concomitant]
     Active Substance: FENTANYL
     Dosage: 100 MILLIGRAM, 3 TIMES A DAY
     Route: 060
     Dates: start: 20201207, end: 20210104
  30. FUROSEMIDE. [Concomitant]
     Active Substance: FUROSEMIDE
     Indication: FLUID RETENTION
     Dosage: UNK
     Route: 065
     Dates: start: 20200910, end: 20200911
  31. METOCLOPRAMIDE. [Concomitant]
     Active Substance: METOCLOPRAMIDE
     Dosage: 10 MILLIGRAM, 1 AS NECESSARY
     Route: 048
     Dates: start: 20210331
  32. MOVICOLON [Concomitant]
     Active Substance: POLYETHYLENE GLYCOL 3350\POTASSIUM CHLORIDE\SODIUM BICARBONATE\SODIUM CHLORIDE
     Indication: PRODUCT USED FOR UNKNOWN INDICATION
     Dosage: 13.8 GRAM AS NECESSARY
     Route: 048
     Dates: start: 20200921
  33. PARACETAMOL [Concomitant]
     Active Substance: ACETAMINOPHEN
     Dosage: 1000 MILLIGRAM, TWO TIMES A DAY
     Route: 048
     Dates: start: 20201008, end: 20201008
  34. PARACETAMOL [Concomitant]
     Active Substance: ACETAMINOPHEN
     Dosage: 1000 MILLIGRAM, FOUR TIMES/DAY
     Route: 048
     Dates: start: 20201009, end: 20201011
  35. TEMAZEPAM. [Concomitant]
     Active Substance: TEMAZEPAM
     Dosage: 10 MILLIGRAM, TWO TIMES A DAY
     Route: 048
     Dates: start: 20200918
  36. VALACICLOVIR [Concomitant]
     Active Substance: VALACYCLOVIR HYDROCHLORIDE
     Indication: PRODUCT USED FOR UNKNOWN INDICATION
     Dosage: 500 MILLIGRAM, TWO TIMES A DAY
     Route: 048
     Dates: start: 20200825
  37. VORICONAZOLE. [Concomitant]
     Active Substance: VORICONAZOLE
     Dosage: 500 MILLIGRAM, TWO TIMES A DAY
     Route: 042
     Dates: start: 20200909
  38. VORICONAZOLE. [Concomitant]
     Active Substance: VORICONAZOLE
     Dosage: 200 MILLIGRAM, TWO TIMES A DAY
     Route: 048
     Dates: start: 20200909, end: 20201010
  39. DEXAMETHASON [Suspect]
     Active Substance: DEXAMETHASONE
     Dosage: 10 MILLIGRAM, TWO TIMES A DAY
     Route: 042
     Dates: start: 20200924, end: 20201001
  40. DEXAMETHASON [Suspect]
     Active Substance: DEXAMETHASONE
     Dosage: 10 MILLIGRAM, FOUR TIMES/DAY
     Route: 048
     Dates: start: 20201001, end: 20201008
  41. DEXAMETHASON [Suspect]
     Active Substance: DEXAMETHASONE
     Dosage: 7.5 MILLIGRAM, ONCE A DAY
     Route: 048
     Dates: start: 20201017, end: 20201019
  42. FLUDARABINE [Suspect]
     Active Substance: FLUDARABINE PHOSPHATE
     Indication: PRODUCT USED FOR UNKNOWN INDICATION
     Dosage: 40 MILLIGRAM, ONCE A DAY
     Route: 048
     Dates: start: 20200902, end: 20200904
  43. MESNA. [Suspect]
     Active Substance: MESNA
     Indication: PRODUCT USED FOR UNKNOWN INDICATION
     Dosage: 400 MILLIGRAM, 3 TIMES A DAY
     Route: 042
     Dates: start: 20200910, end: 20200910
  44. MESNA. [Suspect]
     Active Substance: MESNA
     Indication: ACCIDENTAL EXPOSURE TO PRODUCT
     Dosage: 400 MILLIGRAM, 3 TIMES A DAY
     Route: 042
     Dates: start: 20200910, end: 20200912
  45. CLEMASTINE [Concomitant]
     Active Substance: CLEMASTINE
     Indication: PRODUCT USED FOR UNKNOWN INDICATION
     Dosage: 2 MILLIGRAM(1 TOTAL)
     Route: 042
     Dates: start: 20200915
  46. CYTARABINE. [Concomitant]
     Active Substance: CYTARABINE
     Indication: PRODUCT USED FOR UNKNOWN INDICATION
     Dosage: UNK
     Route: 065
  47. ESOMEPRAZOLE. [Concomitant]
     Active Substance: ESOMEPRAZOLE MAGNESIUM
     Dosage: 40 MILLIGRAM, ONCE A DAY
     Route: 048
     Dates: start: 20200912
  48. FENTANYL. [Concomitant]
     Active Substance: FENTANYL
     Dosage: 100 MICROGRAM, TOTAL
     Route: 060
     Dates: start: 20201022, end: 20201022
  49. METOCLOPRAMIDE. [Concomitant]
     Active Substance: METOCLOPRAMIDE
     Dosage: 10 MILLIGRAM, TWO TIMES A DAY
     Route: 048
     Dates: start: 20201009, end: 20201010
  50. METOCLOPRAMIDE. [Concomitant]
     Active Substance: METOCLOPRAMIDE
     Dosage: 10 MILLIGRAM, ONCE (TOTAL)
     Route: 042
     Dates: start: 20201221, end: 20201221
  51. NOREPINEPHRINE. [Concomitant]
     Active Substance: NOREPINEPHRINE
     Indication: PRODUCT USED FOR UNKNOWN INDICATION
     Dosage: 0.2 MICROGRAM/KILOGRAM, ONCE A DAY
     Route: 042
     Dates: start: 20201009
  52. ONDANSETRON [Concomitant]
     Active Substance: ONDANSETRON
     Indication: VOMITING
     Dosage: 8 MILLIGRAM, TWO TIMES A DAY
     Route: 065
     Dates: start: 20200910, end: 20200915
  53. PARACETAMOL [Concomitant]
     Active Substance: ACETAMINOPHEN
     Dosage: 1000 MILLIGRAM, ONCE A DAY
     Route: 048
     Dates: start: 20200922, end: 20200922
  54. PARACETAMOL [Concomitant]
     Active Substance: ACETAMINOPHEN
     Dosage: 1000 MILLIGRAM(1 TOTAL)
     Route: 048
     Dates: start: 20210329, end: 20210329
  55. RASBURICASE [Concomitant]
     Active Substance: RASBURICASE
     Indication: PRODUCT USED FOR UNKNOWN INDICATION
     Dosage: 3 MILLIGRAM, ONCE A DAY
     Route: 042
     Dates: start: 20200915
  56. TEMAZEPAM. [Concomitant]
     Active Substance: TEMAZEPAM
     Indication: PRODUCT USED FOR UNKNOWN INDICATION
     Dosage: 10 MILLIGRAM (1 TOTAL)
     Route: 048
     Dates: start: 20200914, end: 20200914
  57. VORICONAZOLE. [Concomitant]
     Active Substance: VORICONAZOLE
     Indication: PRODUCT USED FOR UNKNOWN INDICATION
     Dosage: 338.8 MILLIGRAM, TWO TIMES A DAY
     Route: 042
     Dates: start: 20200811, end: 20200819
  58. FLUDARABINE [Suspect]
     Active Substance: FLUDARABINE PHOSPHATE
     Dosage: 10 MILLIGRAM, TWO TIMES A DAY
     Route: 042
     Dates: start: 20200924, end: 20201001
  59. MESNA. [Suspect]
     Active Substance: MESNA
     Dosage: 400 MILLIGRAM, 3 TIMES A DAY
     Route: 042
     Dates: start: 20200912, end: 20200912
  60. KTE C19 [Suspect]
     Active Substance: AXICABTAGENE CILOLEUCEL
     Indication: MANTLE CELL LYMPHOMA REFRACTORY
     Dosage: UNK
     Route: 042
     Dates: start: 20200915, end: 20200915
  61. ANIDULAFUNGIN [Concomitant]
     Active Substance: ANIDULAFUNGIN
     Dosage: 200 MILLIGRAM, ONCE
     Route: 042
     Dates: start: 20200902, end: 20200902
  62. PARACETAMOL [Concomitant]
     Active Substance: ACETAMINOPHEN
     Dosage: 500 MILLIGRAM, FOUR TIMES/DAY
     Route: 048
     Dates: start: 20200921, end: 20200923
  63. PARACETAMOL [Concomitant]
     Active Substance: ACETAMINOPHEN
     Dosage: 100 MILLIGRAM
     Route: 042
     Dates: start: 20200916, end: 20200917
  64. TEMAZEPAM. [Concomitant]
     Active Substance: TEMAZEPAM
     Dosage: 10 MILLIGRAM (1 TOTAL)
     Route: 048
     Dates: start: 20200918, end: 20200918
  65. VORICONAZOLE. [Concomitant]
     Active Substance: VORICONAZOLE
     Dosage: 200 MILLIGRAM, TWO TIMES A DAY
     Route: 042
     Dates: start: 20200819, end: 20200820
  66. FLUDARABINE [Suspect]
     Active Substance: FLUDARABINE PHOSPHATE
     Dosage: 10 MILLIGRAM, ONCE A DAY
     Route: 048
     Dates: start: 20201013, end: 20201016
  67. ANIDULAFUNGIN [Concomitant]
     Active Substance: ANIDULAFUNGIN
     Dosage: 100 MILLIGRAM, ONCE A DAY
     Route: 042
     Dates: start: 20200909, end: 20201010
  68. COTRIMOXAZOL [Concomitant]
     Active Substance: SULFAMETHOXAZOLE\TRIMETHOPRIM
     Dosage: 480 MILLIGRAM, ONCE A DAY
     Route: 048
     Dates: start: 20210330
  69. FENTANYL. [Concomitant]
     Active Substance: FENTANYL
     Indication: PRODUCT USED FOR UNKNOWN INDICATION
     Dosage: 12 MICROGRAM, EVERY HOUR
     Route: 062
     Dates: start: 20200813, end: 20200817
  70. METOCLOPRAMIDE. [Concomitant]
     Active Substance: METOCLOPRAMIDE
     Indication: VOMITING
     Dosage: 10 MILLIGRAM
     Route: 042
     Dates: start: 20200911, end: 20200911
  71. METOCLOPRAMIDE. [Concomitant]
     Active Substance: METOCLOPRAMIDE
     Dosage: 10 MILLIGRAM, TWO TIMES A DAY
     Route: 042
     Dates: start: 20200909, end: 20200910
  72. ONDANSETRON [Concomitant]
     Active Substance: ONDANSETRON
     Dosage: 8 MILLIGRAM, TWO TIMES A DAY
     Route: 065
     Dates: start: 20200917
  73. FLUDARABINE [Suspect]
     Active Substance: FLUDARABINE PHOSPHATE
     Dosage: 30 MILLIGRAM (1 TOTAL)
     Route: 042
     Dates: start: 20200910, end: 20200910
  74. FLUDARABINE [Suspect]
     Active Substance: FLUDARABINE PHOSPHATE
     Dosage: 7.5 MILLIGRAM, ONCE A DAY
     Route: 048
     Dates: start: 20201017, end: 20201019
  75. ANIDULAFUNGIN [Concomitant]
     Active Substance: ANIDULAFUNGIN
     Indication: PRODUCT USED FOR UNKNOWN INDICATION
     Dosage: 100 MILLIGRAM, ONCE A DAY
     Route: 042
     Dates: start: 20200811, end: 20200908
  76. COTRIMOXAZOL [Concomitant]
     Active Substance: SULFAMETHOXAZOLE\TRIMETHOPRIM
     Indication: PRODUCT USED FOR UNKNOWN INDICATION
     Dosage: 480 MILLIGRAM, ONCE A DAY
     Route: 048
     Dates: start: 20200915
  77. ESOMEPRAZOLE. [Concomitant]
     Active Substance: ESOMEPRAZOLE MAGNESIUM
     Dosage: 40 MILLIGRAM, TWO TIMES A DAY
     Route: 048
     Dates: start: 20200902, end: 20200911
  78. HYPROMELLOSE [Concomitant]
     Active Substance: HYPROMELLOSES
     Indication: LACRIMATION INCREASED
     Dosage: UNK
     Route: 065
  79. IBRUTINIB [Concomitant]
     Active Substance: IBRUTINIB
     Dosage: 140 MILLIGRAM, ONCE A DAY
     Route: 048
     Dates: start: 20200819, end: 20200826
  80. LACTULOSE. [Concomitant]
     Active Substance: LACTULOSE
     Dosage: 10 GRAM, TWO TIMES A DAY
     Route: 048
     Dates: start: 20200915
  81. METOCLOPRAMIDE. [Concomitant]
     Active Substance: METOCLOPRAMIDE
     Dosage: 10 MILLIGRAM, 1 AS NECESSARY
     Route: 042
     Dates: start: 20201113
  82. PARACETAMOL [Concomitant]
     Active Substance: ACETAMINOPHEN
     Indication: PRODUCT USED FOR UNKNOWN INDICATION
     Dosage: 1000 MILLIGRAM, TWO TIMES A DAY
     Route: 048
     Dates: start: 20200801, end: 20200817
  83. PARACETAMOL [Concomitant]
     Active Substance: ACETAMINOPHEN
     Dosage: 500 MILLIGRAM, FOUR TIMES/DAY
     Route: 042
     Dates: start: 20200916, end: 20200921
  84. PARACETAMOL [Concomitant]
     Active Substance: ACETAMINOPHEN
     Dosage: 1000  MILLIGRAM, 1 AS NECESSARY
     Route: 048
     Dates: start: 20210330
  85. RITUXIMAB. [Concomitant]
     Active Substance: RITUXIMAB
     Indication: PRODUCT USED FOR UNKNOWN INDICATION
     Dosage: UNK
     Route: 065
  86. VORICONAZOLE. [Concomitant]
     Active Substance: VORICONAZOLE
     Dosage: 200 MILLIGRAM, TWO TIMES A DAY
     Route: 048
     Dates: start: 20200825, end: 20200910
  87. VORICONAZOLE. [Concomitant]
     Active Substance: VORICONAZOLE
     Dosage: 200 MILLIGRAM, TWO TIMES A DAY
     Route: 042
     Dates: start: 20200825, end: 20201008
  88. CYCLOPHOSPHAMIDE. [Suspect]
     Active Substance: CYCLOPHOSPHAMIDE
     Indication: PRODUCT USED FOR UNKNOWN INDICATION
     Dosage: 1040 MILLIGRAM (1 TOTAL)
     Route: 065
     Dates: start: 20200910, end: 20200910
  89. CYCLOPHOSPHAMIDE. [Suspect]
     Active Substance: CYCLOPHOSPHAMIDE
     Dosage: 1040 MILLIGRAM, ONCE A DAY
     Route: 042
     Dates: start: 20200911, end: 20200912
  90. CYCLOPHOSPHAMIDE. [Suspect]
     Active Substance: CYCLOPHOSPHAMIDE
     Dosage: 300 MILLIGRAM 1 TOTAL
     Route: 048
     Dates: start: 20201106, end: 20201106
  91. MESNA. [Suspect]
     Active Substance: MESNA
     Dosage: 1600 MILLIGRAM, TWO TIMES A DAY
     Route: 048
     Dates: start: 20201106, end: 20201108
  92. PARACETAMOL [Concomitant]
     Active Substance: ACETAMINOPHEN
     Dosage: 1000 MILLIGRAM(1 TOTAL)
     Route: 048
     Dates: start: 20200915, end: 20200915
  93. PARACETAMOL [Concomitant]
     Active Substance: ACETAMINOPHEN
     Dosage: 1000 MILLIGRAM, 3 TIMES A DAY
     Route: 042
     Dates: start: 20201011, end: 20201027
  94. VALACICLOVIR [Concomitant]
     Active Substance: VALACYCLOVIR HYDROCHLORIDE
     Dosage: 500 MILLIGRAM, TWO TIMES A DAY
     Route: 048
     Dates: start: 20200909

REACTIONS (23)
  - Haemophagocytic lymphohistiocytosis [Recovered/Resolved]
  - Febrile neutropenia [Recovered/Resolved]
  - Tremor [Recovered/Resolved]
  - Cytokine release syndrome [Recovered/Resolved]
  - Parainfluenzae virus infection [Not Recovered/Not Resolved]
  - Neutropenic sepsis [Recovered/Resolved]
  - Aphasia [Recovered/Resolved]
  - Accidental exposure to product [Recovered/Resolved]
  - Nausea [Recovered/Resolved]
  - Fall [Recovered/Resolved]
  - Abnormal faeces [Not Recovered/Not Resolved]
  - Vomiting [Not Recovered/Not Resolved]
  - Balance disorder [Recovered/Resolved]
  - Confusional state [Not Recovered/Not Resolved]
  - Lacrimation increased [Recovered/Resolved]
  - C-reactive protein increased [Not Recovered/Not Resolved]
  - Infection [Unknown]
  - Rhinovirus infection [Not Recovered/Not Resolved]
  - Delirium [Not Recovered/Not Resolved]
  - Fluid retention [Recovered/Resolved]
  - Constipation [Recovered/Resolved]
  - Cough [Not Recovered/Not Resolved]
  - Pyrexia [Recovered/Resolved]

NARRATIVE: CASE EVENT DATE: 20200728
